FAERS Safety Report 11216129 (Version 2)
Quarter: 2015Q3

REPORT INFORMATION
  Report Type: Spontaneous
  Country: US (occurrence: US)
  Receive Date: 20150624
  Receipt Date: 20150720
  Transmission Date: 20151125
  Serious: Yes (Death, Other)
  Sender: FDA-Public Use
  Company Number: US-ASTELLAS-2015US021689

PATIENT
  Age: 61 Year
  Sex: Female

DRUGS (19)
  1. TARCEVA [Suspect]
     Active Substance: ERLOTINIB HYDROCHLORIDE
     Indication: LUNG CANCER METASTATIC
     Route: 048
  2. PREDNISONE. [Concomitant]
     Active Substance: PREDNISONE
     Indication: PRODUCT USED FOR UNKNOWN INDICATION
     Route: 065
  3. TARCEVA [Suspect]
     Active Substance: ERLOTINIB HYDROCHLORIDE
     Indication: LUNG ADENOCARCINOMA METASTATIC
     Dosage: 150 MG, ONE IN 2 DAYS
     Route: 048
     Dates: start: 20150430
  4. TARCEVA [Suspect]
     Active Substance: ERLOTINIB HYDROCHLORIDE
     Indication: LUNG NEOPLASM MALIGNANT
  5. ONDANSETRON [Concomitant]
     Active Substance: ONDANSETRON
     Indication: PRODUCT USED FOR UNKNOWN INDICATION
     Route: 065
  6. SPIRONOLACTONE. [Concomitant]
     Active Substance: SPIRONOLACTONE
     Indication: MALABSORPTION
     Dosage: UNK UNK, EVERY OTHER DAY
     Route: 048
     Dates: start: 201503
  7. PERCOCET                           /00446701/ [Concomitant]
     Active Substance: ACETAMINOPHEN\OXYCODONE HYDROCHLORIDE\OXYCODONE TEREPHTHALATE
     Indication: PRODUCT USED FOR UNKNOWN INDICATION
     Dosage: 5/325 MG, AS NEEDED
     Route: 048
     Dates: start: 2014
  8. DEXAMETHASONE. [Concomitant]
     Active Substance: DEXAMETHASONE
     Indication: PRODUCT USED FOR UNKNOWN INDICATION
     Route: 048
     Dates: start: 201503
  9. MAGNESIUM [Concomitant]
     Active Substance: MAGNESIUM
     Indication: PRODUCT USED FOR UNKNOWN INDICATION
     Dosage: UNK UNK, UNKNOWN FREQ.
     Route: 065
  10. DIPHENHYDRAMINE HCL [Concomitant]
     Active Substance: DIPHENHYDRAMINE HYDROCHLORIDE
     Indication: PRODUCT USED FOR UNKNOWN INDICATION
     Dosage: 50 MG/ML, UNKNOWN FREQ.
     Route: 065
  11. TRAMADOL. [Concomitant]
     Active Substance: TRAMADOL
     Indication: PAIN
     Route: 048
     Dates: start: 2014
  12. RITUXAN [Suspect]
     Active Substance: RITUXIMAB
     Indication: PRODUCT USED FOR UNKNOWN INDICATION
     Route: 042
  13. POTASSIUM [Concomitant]
     Active Substance: POTASSIUM
     Indication: PRODUCT USED FOR UNKNOWN INDICATION
     Route: 048
     Dates: start: 201502
  14. FERROUS SULFATE [Concomitant]
     Active Substance: FERROUS SULFATE\FERROUS SULFATE, DRIED
     Indication: PRODUCT USED FOR UNKNOWN INDICATION
     Route: 065
  15. TARCEVA [Suspect]
     Active Substance: ERLOTINIB HYDROCHLORIDE
     Indication: LUNG CARCINOMA CELL TYPE UNSPECIFIED STAGE I
  16. POTASSIUM CITRATE. [Concomitant]
     Active Substance: POTASSIUM CITRATE
     Indication: PRODUCT USED FOR UNKNOWN INDICATION
     Route: 065
     Dates: start: 201502
  17. FLUZONE                            /00780601/ [Concomitant]
     Indication: PRODUCT USED FOR UNKNOWN INDICATION
     Dosage: UNK UNK, UNKNOWN FREQ.
     Route: 065
  18. FOLIC ACID. [Concomitant]
     Active Substance: FOLIC ACID
     Indication: PRODUCT USED FOR UNKNOWN INDICATION
     Dosage: UNK UNK, ONCE DAILY
     Route: 048
     Dates: start: 2014
  19. PNEUMOVAX 23 [Concomitant]
     Active Substance: PNEUMOCOCCAL VACCINE, POLYVALENT 23
     Indication: PRODUCT USED FOR UNKNOWN INDICATION
     Dosage: 23 INJECTION 25/0.5, UNKNOWN FREQ.
     Route: 065

REACTIONS (5)
  - Death [Fatal]
  - Urticaria [Not Recovered/Not Resolved]
  - Generalised tonic-clonic seizure [Recovered/Resolved]
  - Speech disorder [Not Recovered/Not Resolved]
  - Vomiting [Unknown]

NARRATIVE: CASE EVENT DATE: 20150520
